FAERS Safety Report 4916295-1 (Version None)
Quarter: 2006Q1

REPORT INFORMATION
  Report Type: 
  Country: None (occurrence: None)
  Receive Date: 20060113
  Receipt Date: 20050927
  Transmission Date: 20060701
  Serious: No
  Sender: FDA-Public Use
  Company Number: 2005SP003206

PATIENT
  Age: 54 Year
  Sex: Female

DRUGS (4)
  1. LUNESTA [Suspect]
     Indication: INSOMNIA
     Dosage: 2 MG;HS;ORAL    3 MG;HS;ORAL
     Route: 048
     Dates: start: 20050826, end: 20050901
  2. LUNESTA [Suspect]
     Indication: INSOMNIA
     Dosage: 2 MG;HS;ORAL    3 MG;HS;ORAL
     Route: 048
     Dates: start: 20050901, end: 20051001
  3. CELEXA [Concomitant]
  4. ZOMIG [Concomitant]

REACTIONS (6)
  - DRUG INEFFECTIVE [None]
  - HOT FLUSH [None]
  - INCREASED APPETITE [None]
  - MIDDLE INSOMNIA [None]
  - NIGHT SWEATS [None]
  - WEIGHT INCREASED [None]
